FAERS Safety Report 20611034 (Version 1)
Quarter: 2022Q1

REPORT INFORMATION
  Report Type: Spontaneous
  Country: US (occurrence: US)
  Receive Date: 20220318
  Receipt Date: 20220318
  Transmission Date: 20220423
  Serious: Yes (Death, Other)
  Sender: FDA-Public Use
  Company Number: US-GLAXOSMITHKLINE-US2022GSK048453

PATIENT
  Sex: Male

DRUGS (8)
  1. ZANTAC [Suspect]
     Active Substance: RANITIDINE HYDROCHLORIDE
     Indication: Dyspepsia
     Dosage: 75 MG, 3 X PER WEEK
     Route: 065
     Dates: start: 199001, end: 201909
  2. ZANTAC [Suspect]
     Active Substance: RANITIDINE HYDROCHLORIDE
     Dosage: 150 MG, 3 X PER WEEK
     Route: 065
     Dates: start: 199001, end: 201909
  3. ZANTAC [Suspect]
     Active Substance: RANITIDINE HYDROCHLORIDE
     Indication: Dyspepsia
     Dosage: 75 MG, 3 X PER WEEK
     Route: 065
     Dates: start: 199001, end: 201909
  4. ZANTAC [Suspect]
     Active Substance: RANITIDINE HYDROCHLORIDE
     Dosage: 150 MG, 3 X PER WEEK
     Route: 065
     Dates: start: 199001, end: 201909
  5. RANITIDINE [Suspect]
     Active Substance: RANITIDINE
     Indication: Dyspepsia
     Dosage: 75 MG, 3 X PER WEEK
     Route: 065
     Dates: start: 199709, end: 202004
  6. RANITIDINE [Suspect]
     Active Substance: RANITIDINE
     Dosage: 150 MG, 3 X PER WEEK
     Route: 065
     Dates: start: 199709, end: 202004
  7. RANITIDINE [Suspect]
     Active Substance: RANITIDINE
     Indication: Dyspepsia
     Dosage: 75 MG, 3 X PER WEEK
     Route: 065
     Dates: start: 199709, end: 202004
  8. RANITIDINE [Suspect]
     Active Substance: RANITIDINE
     Dosage: 150 MG, 3 X PER WEEK
     Route: 065
     Dates: start: 199709, end: 202004

REACTIONS (5)
  - Neoplasm malignant [Fatal]
  - Brain neoplasm malignant [Unknown]
  - Oesophageal carcinoma [Unknown]
  - Hepatic cancer [Unknown]
  - Pancreatic carcinoma [Unknown]
